FAERS Safety Report 14125078 (Version 1)
Quarter: 2017Q4

REPORT INFORMATION
  Report Type: Spontaneous
  Country: PR (occurrence: PR)
  Receive Date: 20171025
  Receipt Date: 20171025
  Transmission Date: 20180321
  Serious: Yes (Other)
  Sender: FDA-Public Use
  Company Number: PR-ASTRAZENECA-2017SF06773

PATIENT
  Age: 88 Year
  Sex: Male

DRUGS (5)
  1. ROSUVASTATIN. [Suspect]
     Active Substance: ROSUVASTATIN
     Route: 048
  2. TERAZOSIN [Concomitant]
     Active Substance: TERAZOSIN\TERAZOSIN HYDROCHLORIDE
  3. VALERIAN [Interacting]
     Active Substance: VALERIAN
     Indication: INSOMNIA
     Route: 065
  4. LOSARTAN. [Concomitant]
     Active Substance: LOSARTAN
  5. MELATONIN [Concomitant]
     Active Substance: MELATONIN
     Indication: INSOMNIA

REACTIONS (3)
  - Acute kidney injury [Not Recovered/Not Resolved]
  - Drug interaction [Unknown]
  - Rhabdomyolysis [Unknown]
